FAERS Safety Report 14060399 (Version 1)
Quarter: 2017Q4

REPORT INFORMATION
  Report Type: Report from Study
  Country: US (occurrence: US)
  Receive Date: 20171006
  Receipt Date: 20171006
  Transmission Date: 20180321
  Serious: No
  Sender: FDA-Public Use
  Company Number: US-AMGEN-USASL2016173301

PATIENT
  Age: 45 Year
  Sex: Male

DRUGS (1)
  1. VECTIBIX [Suspect]
     Active Substance: PANITUMUMAB
     Indication: BENIGN GASTRIC NEOPLASM
     Dosage: UNK
     Route: 065

REACTIONS (1)
  - Off label use [Unknown]
